FAERS Safety Report 8074033-0 (Version None)
Quarter: 2012Q1

REPORT INFORMATION
  Report Type: 
  Country: None (occurrence: None)
  Receive Date: 20120119
  Receipt Date: 20120109
  Transmission Date: 20120608
  Serious: Yes (Death)
  Sender: FDA-Public Use
  Company Number: 1000026851

PATIENT
  Age: 49 Year
  Sex: Male

DRUGS (6)
  1. DILTIAZEM HYDROCHLORIDE [Suspect]
  2. COLCHICINE [Suspect]
     Dosage: 0.5 MG
  3. DICLOFENAC SODIUM [Suspect]
  4. INDAPAMIDE [Suspect]
  5. KETOPROFEN [Suspect]
  6. ENALAPRIL MALEATE [Suspect]

REACTIONS (10)
  - TOXICITY TO VARIOUS AGENTS [None]
  - SUICIDE ATTEMPT [None]
  - DISSEMINATED INTRAVASCULAR COAGULATION [None]
  - LEUKOCYTOSIS [None]
  - CARDIAC ARREST [None]
  - ACUTE RESPIRATORY DISTRESS SYNDROME [None]
  - SHOCK [None]
  - MULTI-ORGAN FAILURE [None]
  - MULTIPLE DRUG OVERDOSE [None]
  - CARDIOVASCULAR DISORDER [None]
